FAERS Safety Report 8595797-3 (Version None)
Quarter: 2012Q3

REPORT INFORMATION
  Report Type: 
  Country: None (occurrence: None)
  Receive Date: 20120815
  Receipt Date: 20120806
  Transmission Date: 20120928
  Serious: Yes (Hospitalization)
  Sender: FDA-Public Use
  Company Number: JP-UCBSA-063524

PATIENT
  Age: 59 Year
  Sex: Female

DRUGS (8)
  1. KETOPROFEN [Concomitant]
     Dates: start: 20110519
  2. CIMZIA [Suspect]
     Indication: RHEUMATOID ARTHRITIS
     Route: 058
     Dates: start: 20100105
  3. TACROLIMUS [Concomitant]
     Dates: start: 20091113
  4. REBAMIPIDE [Concomitant]
     Dates: start: 20110715
  5. DICLOFENAC SODIUM [Concomitant]
     Dates: start: 20070619
  6. RABEPRAZOLE SODIUM [Concomitant]
     Dates: start: 20080422
  7. TACROLIMUS [Concomitant]
     Dates: start: 20091113
  8. PREDNISOLONE [Concomitant]
     Dates: start: 20111102

REACTIONS (1)
  - CYSTITIS [None]
